FAERS Safety Report 23732963 (Version 1)
Quarter: 2024Q2

REPORT INFORMATION
  Report Type: Other
  Country: US (occurrence: US)
  Receive Date: 20240411
  Receipt Date: 20240411
  Transmission Date: 20240716
  Serious: Yes (Hospitalization)
  Sender: FDA-Public Use
  Company Number: US-PARATEK PHARMACEUTICALS, INC.-2024PTK00069

PATIENT
  Age: 69 Year
  Sex: Female

DRUGS (2)
  1. NUZYRA [Suspect]
     Active Substance: OMADACYCLINE
     Indication: Cellulitis
  2. SIVEXTRO [Suspect]
     Active Substance: TEDIZOLID PHOSPHATE
     Indication: Cellulitis

REACTIONS (7)
  - Poor quality sleep [Unknown]
  - Hospitalisation [Unknown]
  - Tremor [Unknown]
  - Drug ineffective [Unknown]
  - Vomiting [Unknown]
  - Incorrect product administration duration [Unknown]
  - Product availability issue [Unknown]

NARRATIVE: CASE EVENT DATE: 20230101
